FAERS Safety Report 8024480-8 (Version None)
Quarter: 2012Q1

REPORT INFORMATION
  Report Type: 
  Country: None (occurrence: None)
  Receive Date: 20120105
  Receipt Date: 20111227
  Transmission Date: 20120608
  Serious: Yes (Hospitalization)
  Sender: FDA-Public Use
  Company Number: BR-SANOFI-AVENTIS-2011SA085173

PATIENT
  Age: 86 Year
  Sex: Female

DRUGS (1)
  1. PLAVIX [Suspect]
     Route: 065

REACTIONS (4)
  - ANAEMIA [None]
  - DYSPNOEA [None]
  - CHEST PAIN [None]
  - FEELING ABNORMAL [None]
